FAERS Safety Report 6331576-5 (Version None)
Quarter: 2009Q3

REPORT INFORMATION
  Report Type: 
  Country: None (occurrence: None)
  Receive Date: 20090827
  Receipt Date: 20090820
  Transmission Date: 20100115
  Serious: Yes (Hospitalization, Other)
  Sender: FDA-Public Use
  Company Number: US-JNJFOC-20081002623

PATIENT
  Sex: Female
  Weight: 56.79 kg

DRUGS (7)
  1. ORTHO EVRA [Suspect]
     Indication: DRUG USE FOR UNKNOWN INDICATION
     Route: 062
  2. LEXAPRO [Concomitant]
     Indication: DRUG USE FOR UNKNOWN INDICATION
  3. HYDROCODONE [Concomitant]
     Indication: MUSCULOSKELETAL PAIN
  4. TRIAZOLAM [Concomitant]
     Indication: SLEEP DISORDER
  5. LISINOPRIL [Concomitant]
     Indication: DRUG USE FOR UNKNOWN INDICATION
  6. PROTONIX [Concomitant]
  7. RANITIDINE [Concomitant]

REACTIONS (3)
  - HYPERTENSIVE CRISIS [None]
  - PARAESTHESIA [None]
  - WEIGHT DECREASED [None]
